FAERS Safety Report 4559528-6 (Version None)
Quarter: 2005Q1

REPORT INFORMATION
  Report Type: 
  Country: None (occurrence: None)
  Receive Date: 20050124
  Receipt Date: 20050103
  Transmission Date: 20050727
  Serious: Yes (Hospitalization, Other)
  Sender: FDA-Public Use
  Company Number: US-GLAXOSMITHKLINE-A0539077A

PATIENT
  Age: 17 Year
  Sex: Female
  Weight: 50 kg

DRUGS (3)
  1. PAXIL CR [Suspect]
     Indication: ILL-DEFINED DISORDER
     Dosage: 12.5MG PER DAY
     Route: 048
     Dates: start: 20030224, end: 20030226
  2. LUVOX [Concomitant]
     Dosage: 50MG TWICE PER DAY
     Route: 048
     Dates: start: 20030224, end: 20030226
  3. REMERON [Concomitant]
     Dosage: 15MG AT NIGHT
     Route: 048
     Dates: start: 20030224, end: 20030226

REACTIONS (7)
  - ANXIETY [None]
  - ASTHENIA [None]
  - CONVULSION [None]
  - DEHYDRATION [None]
  - FATIGUE [None]
  - MUSCLE TWITCHING [None]
  - SEROTONIN SYNDROME [None]
